FAERS Safety Report 4934308-8 (Version None)
Quarter: 2006Q1

REPORT INFORMATION
  Report Type: 
  Country: None (occurrence: None)
  Receive Date: 20060303
  Receipt Date: 20060222
  Transmission Date: 20060701
  Serious: Yes (Life-Threatening)
  Sender: FDA-Public Use
  Company Number: 2006P1000120

PATIENT
  Age: 65 Year
  Sex: Male

DRUGS (6)
  1. RETEPLASE (RETEPLASE) [Suspect]
     Indication: ACUTE MYOCARDIAL INFARCTION
     Dosage: 20 IU; 1X; IV
     Route: 042
     Dates: start: 20040328
  2. HEPARIN [Suspect]
     Indication: ACUTE MYOCARDIAL INFARCTION
     Dosage: 5000 IU; QD; IV
     Route: 042
     Dates: start: 20040328, end: 20040331
  3. CLOPIDOGREL BISULFATE [Suspect]
     Indication: MYOCARDIAL ISCHAEMIA
     Dosage: 600 MG; QD; PO
     Route: 048
     Dates: start: 20040328, end: 20040331
  4. DIPYRIDAMOLE [Concomitant]
  5. GLYCERYL TRINITRATE [Concomitant]
  6. ZOLOFT [Concomitant]

REACTIONS (2)
  - ACTIVATED PARTIAL THROMBOPLASTIN TIME PROLONGED [None]
  - HAEMATURIA [None]
